FAERS Safety Report 14592250 (Version 1)
Quarter: 2018Q1

REPORT INFORMATION
  Report Type: Spontaneous
  Country: ES (occurrence: ES)
  Receive Date: 20180302
  Receipt Date: 20180302
  Transmission Date: 20180509
  Serious: Yes (Other)
  Sender: FDA-Public Use
  Company Number: ES-ALEXION-A201802002

PATIENT
  Age: 2 Year
  Sex: Male

DRUGS (1)
  1. SOLIRIS [Suspect]
     Active Substance: ECULIZUMAB
     Indication: ATYPICAL HAEMOLYTIC URAEMIC SYNDROME
     Dosage: UNK
     Route: 065
     Dates: start: 201705

REACTIONS (27)
  - Ultrasound kidney abnormal [Unknown]
  - Aortic valve incompetence [Unknown]
  - Hepatomegaly [Unknown]
  - Blood phosphorus increased [Unknown]
  - Hypertension [Recovered/Resolved]
  - Inappropriate schedule of drug administration [Unknown]
  - Proteinuria [Unknown]
  - Platelet count decreased [Unknown]
  - Congestive cardiomyopathy [Unknown]
  - Pulmonary hypertension [Unknown]
  - Cardiac murmur [Unknown]
  - Rales [Unknown]
  - Blood lactate dehydrogenase increased [Unknown]
  - Mitral valve incompetence [Unknown]
  - Plateletcrit decreased [Unknown]
  - Blood creatinine increased [Unknown]
  - Capillary nail refill test abnormal [Unknown]
  - Use of accessory respiratory muscles [Unknown]
  - Laevocardia [Unknown]
  - Reticulocyte count increased [Unknown]
  - Haptoglobin decreased [Unknown]
  - Respiratory failure [Unknown]
  - Tachypnoea [Unknown]
  - Blood urea increased [Unknown]
  - Complement factor C3 decreased [Unknown]
  - Reticulocyte percentage increased [Unknown]
  - Oxygen saturation decreased [Unknown]
